FAERS Safety Report 11729591 (Version 1)
Quarter: 2015Q4

REPORT INFORMATION
  Report Type: Report from Study
  Country: GR (occurrence: GR)
  Receive Date: 20151112
  Receipt Date: 20151112
  Transmission Date: 20160304
  Serious: Yes (Hospitalization, Other)
  Sender: FDA-Public Use
  Company Number: PHHY2015GR147188

PATIENT
  Age: 84 Year
  Sex: Female

DRUGS (1)
  1. PAZOPANIB [Suspect]
     Active Substance: PAZOPANIB
     Indication: RENAL CANCER METASTATIC
     Route: 065

REACTIONS (9)
  - Communication disorder [Recovered/Resolved]
  - Hypothyroidism [Recovered/Resolved]
  - Toxicity to various agents [Unknown]
  - Pulmonary mass [Unknown]
  - Malignant neoplasm progression [Unknown]
  - Metastases to central nervous system [Recovered/Resolved]
  - Transaminases increased [Recovered/Resolved]
  - Peritoneal disorder [Unknown]
  - Metastases to lung [Unknown]
